FAERS Safety Report 11977541 (Version 1)
Quarter: 2016Q1

REPORT INFORMATION
  Report Type: Spontaneous
  Country: US (occurrence: None)
  Receive Date: 20160128
  Receipt Date: 20160128
  Transmission Date: 20160526
  Serious: Yes (Life-Threatening, Hospitalization, Disabling, Other)
  Sender: FDA-Public Use
  Company Number: None

PATIENT
  Age: 42 Year
  Sex: Female
  Weight: 68.04 kg

DRUGS (8)
  1. KLONOPIN [Suspect]
     Active Substance: CLONAZEPAM
     Indication: ANXIETY
     Dosage: 2 PILKS TWICE DAILY TAKEN BY MOUTH
     Route: 048
     Dates: start: 20130515, end: 20140718
  2. VITAMIN D [Concomitant]
     Active Substance: CHOLECALCIFEROL
  3. VITAMIN B12 [Concomitant]
     Active Substance: CYANOCOBALAMIN
  4. HYDROCODONE [Concomitant]
     Active Substance: HYDROCODONE
  5. MAGNESIUM [Concomitant]
     Active Substance: MAGNESIUM
  6. METHMAZOLE [Concomitant]
  7. POTASSIUM [Concomitant]
     Active Substance: POTASSIUM
  8. KLONOPIN [Suspect]
     Active Substance: CLONAZEPAM
     Indication: HYPERTHYROIDISM
     Dosage: 2 PILKS TWICE DAILY TAKEN BY MOUTH
     Route: 048
     Dates: start: 20130515, end: 20140718

REACTIONS (6)
  - Visual impairment [None]
  - Quality of life decreased [None]
  - Intentional self-injury [None]
  - Hyperthyroidism [None]
  - Memory impairment [None]
  - Suicide attempt [None]

NARRATIVE: CASE EVENT DATE: 20140718
